FAERS Safety Report 4914942-1 (Version None)
Quarter: 2006Q1

REPORT INFORMATION
  Report Type: 
  Country: None (occurrence: None)
  Receive Date: 20060217
  Receipt Date: 20060209
  Transmission Date: 20060701
  Serious: Yes (Other)
  Sender: FDA-Public Use
  Company Number: JP-JNJFOC-20060202537

PATIENT
  Sex: Female
  Weight: 50 kg

DRUGS (23)
  1. REMICADE [Suspect]
     Route: 042
  2. REMICADE [Suspect]
     Route: 042
  3. REMICADE [Suspect]
     Route: 042
  4. REMICADE [Suspect]
     Route: 042
  5. REMICADE [Suspect]
     Route: 042
  6. REMICADE [Suspect]
     Route: 042
  7. REMICADE [Suspect]
     Route: 042
  8. REMICADE [Suspect]
     Route: 042
  9. REMICADE [Suspect]
     Route: 042
  10. REMICADE [Suspect]
     Route: 042
  11. REMICADE [Suspect]
     Route: 042
  12. REMICADE [Suspect]
     Route: 042
  13. REMICADE [Suspect]
     Indication: RHEUMATOID ARTHRITIS
     Route: 042
  14. METHOTREXATE [Concomitant]
     Route: 048
  15. METHOTREXATE [Concomitant]
     Route: 048
  16. METHOTREXATE [Concomitant]
     Indication: RHEUMATOID ARTHRITIS
     Route: 048
  17. PREDNISOLONE [Concomitant]
     Indication: RHEUMATOID ARTHRITIS
     Route: 048
  18. INFREE S [Concomitant]
     Indication: RHEUMATOID ARTHRITIS
     Route: 048
  19. ADRENAL HORMONE PREPARATIONS [Concomitant]
     Indication: RHEUMATOID ARTHRITIS
  20. CYTOTEC [Concomitant]
     Route: 048
  21. BLOPRESS [Concomitant]
     Route: 048
  22. GASTER D [Concomitant]
     Route: 048
  23. AMLODIN [Concomitant]
     Route: 048

REACTIONS (1)
  - BILIARY CIRRHOSIS PRIMARY [None]
